FAERS Safety Report 11828060 (Version 2)
Quarter: 2016Q1

REPORT INFORMATION
  Report Type: Spontaneous
  Country: JP (occurrence: JP)
  Receive Date: 20151211
  Receipt Date: 20160126
  Transmission Date: 20160525
  Serious: Yes (Other)
  Sender: FDA-Public Use
  Company Number: JP-TEVA-2015-JP-002517J

PATIENT
  Age: 75 Year
  Sex: Male

DRUGS (2)
  1. LANSOPRAZOLE OD TABLET 15MG TEVA [Suspect]
     Active Substance: LANSOPRAZOLE
     Indication: PRODUCT USED FOR UNKNOWN INDICATION
     Dosage: 15 MILLIGRAM DAILY;
     Route: 048
     Dates: start: 20151105, end: 20151202
  2. BENZBROMARONE [Concomitant]
     Active Substance: BENZBROMARONE
     Route: 048

REACTIONS (5)
  - Pain in extremity [Recovering/Resolving]
  - Pyrexia [Recovering/Resolving]
  - Muscle injury [Recovering/Resolving]
  - Hepatic function abnormal [Recovering/Resolving]
  - Myalgia [Recovering/Resolving]
